FAERS Safety Report 7200096-8 (Version None)
Quarter: 2010Q4

REPORT INFORMATION
  Report Type: 
  Country: None (occurrence: None)
  Receive Date: 20101217
  Receipt Date: 20101201
  Transmission Date: 20110411
  Serious: Yes (Hospitalization)
  Sender: FDA-Public Use
  Company Number: 008306

PATIENT
  Age: 35 Year
  Sex: Female
  Weight: 44.8 kg

DRUGS (2)
  1. BUSULFEX [Suspect]
     Indication: BONE MARROW TRANSPLANT
     Dosage: 36 MG, DAILY DOSE, INTRAVENOUS
     Route: 042
  2. CYCLOSPORINE [Concomitant]

REACTIONS (5)
  - CARDIAC FAILURE [None]
  - DYSPNOEA [None]
  - DYSPNOEA EXERTIONAL [None]
  - PULMONARY ARTERIAL HYPERTENSION [None]
  - TRICUSPID VALVE INCOMPETENCE [None]
